FAERS Safety Report 4599827-5 (Version None)
Quarter: 2005Q1

REPORT INFORMATION
  Report Type: 
  Country: None (occurrence: None)
  Receive Date: 20050303
  Receipt Date: 20050221
  Transmission Date: 20050727
  Serious: Yes (Other)
  Sender: FDA-Public Use
  Company Number: 200510776BCC

PATIENT
  Sex: Male

DRUGS (1)
  1. ALKA-SELTZER PLUS EFFERVESCENT COLD - CHERRY BURST [Suspect]
     Indication: NASOPHARYNGITIS
     Dosage: SEE IMAGE
     Route: 048

REACTIONS (4)
  - ALCOHOL USE [None]
  - EPISTAXIS [None]
  - INTENTIONAL MISUSE [None]
  - SYNCOPE [None]
